FAERS Safety Report 7938997-5 (Version None)
Quarter: 2011Q4

REPORT INFORMATION
  Report Type: 
  Country: None (occurrence: None)
  Receive Date: 20111124
  Receipt Date: 20111109
  Transmission Date: 20120403
  Serious: Yes (Hospitalization, Disabling, Congenital Anomaly)
  Sender: FDA-Public Use
  Company Number: DK-JNJFOC-20111110275

PATIENT
  Sex: Female

DRUGS (6)
  1. DIAZEPAM [Suspect]
     Indication: FOETAL EXPOSURE DURING PREGNANCY
     Dosage: 10 ML D
     Route: 064
  2. DIAZEPAM [Suspect]
     Route: 064
  3. HALOPERIDOL [Suspect]
     Route: 064
  4. HALOPERIDOL [Suspect]
     Indication: FOETAL EXPOSURE DURING PREGNANCY
     Dosage: 50 MIKG/ML, 150 MG T
     Route: 064
     Dates: start: 19851219
  5. DIAZEPAM [Suspect]
     Route: 064
  6. DIAZEPAM [Suspect]
     Indication: FOETAL EXPOSURE DURING PREGNANCY
     Dosage: 20 ML T
     Route: 064
     Dates: start: 19851219

REACTIONS (5)
  - FOETAL EXPOSURE DURING PREGNANCY [None]
  - PIERRE ROBIN SYNDROME [None]
  - TALIPES [None]
  - CLEFT PALATE [None]
  - CONGENITAL HIP DEFORMITY [None]
